FAERS Safety Report 5282991-2 (Version None)
Quarter: 2007Q1

REPORT INFORMATION
  Report Type: 
  Country: None (occurrence: None)
  Receive Date: 20070328
  Receipt Date: 20070328
  Transmission Date: 20070707
  Serious: Yes (Other)
  Sender: FDA-Public Use
  Company Number: None

PATIENT
  Age: 74 Year
  Sex: Male
  Weight: 117.8 kg

DRUGS (16)
  1. OXYCODONE HCL [Suspect]
  2. MORPHINE [Concomitant]
  3. FOSINOPRIL SODIUM [Concomitant]
  4. CLONAZEPAM [Concomitant]
  5. SIMVASTATIN [Concomitant]
  6. PANTOPRAZOLE [Concomitant]
  7. DOCUSATE SODIUM [Concomitant]
  8. CETIRIZINE HCL [Concomitant]
  9. ACETAMINOPHEN [Concomitant]
  10. TERAZOSIN HCL [Concomitant]
  11. METOPROLOL TARTRATE [Concomitant]
  12. GLIPIZIDE [Concomitant]
  13. INFLUENZA VIRUS VACCINE [Concomitant]
  14. IPRATROPIUM MDI [Concomitant]
  15. FORMOTEROL FUMARATE [Concomitant]
  16. MILK OF MAGNESIA [Concomitant]

REACTIONS (1)
  - PRURITUS [None]
